FAERS Safety Report 12958880 (Version 2)
Quarter: 2016Q4

REPORT INFORMATION
  Report Type: Spontaneous
  Country: SE (occurrence: SE)
  Receive Date: 20161121
  Receipt Date: 20161220
  Transmission Date: 20170207
  Serious: Yes (Other)
  Sender: FDA-Public Use
  Company Number: SE-SHIRE-SE201616302

PATIENT
  Age: 6 Decade
  Sex: Female

DRUGS (1)
  1. ELVANSE VUXEN [Suspect]
     Active Substance: LISDEXAMFETAMINE DIMESYLATE
     Indication: ATTENTION DEFICIT/HYPERACTIVITY DISORDER
     Dosage: 70 MG, 1X/DAY:QD
     Route: 048
     Dates: start: 201603

REACTIONS (4)
  - Arthropod bite [Recovered/Resolved]
  - Neurological symptom [Recovered/Resolved]
  - Borrelia infection [Unknown]
  - Neuroborreliosis [Unknown]

NARRATIVE: CASE EVENT DATE: 2016
